FAERS Safety Report 20871125 (Version 1)
Quarter: 2022Q2

REPORT INFORMATION
  Report Type: Spontaneous
  Country: US (occurrence: None)
  Receive Date: 20220524
  Receipt Date: 20220524
  Transmission Date: 20220721
  Serious: Yes (Hospitalization)
  Sender: FDA-Public Use
  Company Number: None

PATIENT
  Age: 65 Year
  Sex: Male

DRUGS (1)
  1. ABIRATERONE [Suspect]
     Active Substance: ABIRATERONE
     Indication: Prostate cancer
     Dosage: 1000 MG DAILY OCCLUSIVE DRESSING TECHNIQUE ?
     Route: 046
     Dates: start: 202201

REACTIONS (8)
  - Hot flush [None]
  - Middle insomnia [None]
  - Breast neoplasm [None]
  - Dizziness [None]
  - Dehydration [None]
  - Loss of consciousness [None]
  - Fall [None]
  - Face injury [None]

NARRATIVE: CASE EVENT DATE: 20220402
